FAERS Safety Report 13579277 (Version 1)
Quarter: 2017Q2

REPORT INFORMATION
  Report Type: Report from Study
  Country: None (occurrence: IL)
  Receive Date: 20170525
  Receipt Date: 20170525
  Transmission Date: 20170830
  Serious: Yes (Other)
  Sender: FDA-Public Use
  Company Number: IL-ABBVIE-17P-082-1877330-00

PATIENT
  Age: 65 Year
  Sex: Male

DRUGS (1)
  1. DUODOPA [Suspect]
     Active Substance: CARBIDOPA\LEVODOPA
     Indication: PARKINSON^S DISEASE
     Dosage: CURRENT MORNING DOSE: 6.5 ML, CURRENT FIXED RATE: 5 ML/ HOUR, CURRENT EXTRA DOSE: 2 ML
     Route: 050
     Dates: start: 20150715

REACTIONS (4)
  - Deep brain stimulation [Unknown]
  - On and off phenomenon [Not Recovered/Not Resolved]
  - On and off phenomenon [Recovered/Resolved]
  - Balance disorder [Not Recovered/Not Resolved]

NARRATIVE: CASE EVENT DATE: 20170205
